FAERS Safety Report 17754664 (Version 1)
Quarter: 2020Q2

REPORT INFORMATION
  Report Type: Spontaneous
  Country: JP (occurrence: JP)
  Receive Date: 20200507
  Receipt Date: 20200507
  Transmission Date: 20200714
  Serious: Yes (Life-Threatening, Other)
  Sender: FDA-Public Use
  Company Number: JP-EDENBRIDGE PHARMACEUTICALS, LLC-JP-2020EDE000011

PATIENT

DRUGS (10)
  1. CYCLOPHOSPHAMIDE. [Suspect]
     Active Substance: CYCLOPHOSPHAMIDE
     Indication: DIFFUSE LARGE B-CELL LYMPHOMA
     Dosage: 750 MG/M2 (ON DAY 1 OF CYCLE ONE AND DAY 2 OF CYCLES TWO, THREE, AND SIX TO EIGHT)
     Route: 042
  2. LEUCOVORIN                         /00566701/ [Concomitant]
     Active Substance: LEUCOVORIN
     Indication: DRUG TOXICITY PROPHYLAXIS
     Dosage: 15 MG (EIGHT TIMES EVERY 6 H FROM 24 H AFTER STARTING HIGH-DOSE METHOTREXATE)
  3. METHOTREXATE. [Suspect]
     Active Substance: METHOTREXATE
     Dosage: 15 MG (BEFORE THE START OF CYCLES TWO, THREE, SEVEN, AND EIGHT OF R-CHOP)
     Route: 037
  4. PREDNISOLONE SODIUM PHOSPHATE. [Suspect]
     Active Substance: PREDNISOLONE SODIUM PHOSPHATE
     Dosage: 10 MG (BEFORE THE START OF CYCLES TWO, THREE, SEVEN, AND EIGHT OF R-CHOP)
     Route: 037
  5. PREDNISOLONE SODIUM PHOSPHATE. [Suspect]
     Active Substance: PREDNISOLONE SODIUM PHOSPHATE
     Indication: DIFFUSE LARGE B-CELL LYMPHOMA
     Dosage: UNK (ON DAYS 1?5 OF CYCLE ONE AND DAYS 2?6 OF CYCLES TWO, THREE, AND SIX TO EIGHT)
     Route: 048
  6. VINCRISTINE [Suspect]
     Active Substance: VINCRISTINE
     Indication: DIFFUSE LARGE B-CELL LYMPHOMA
     Dosage: 1.4 MG/M2 (MAXIMUM 2.0 MG) (ON DAY 1 OF CYCLE ONE AND DAY 2 OF CYCLES TWO, THREE, AND SIX TO EIGHT)
     Route: 042
  7. METHOTREXATE. [Suspect]
     Active Substance: METHOTREXATE
     Indication: DIFFUSE LARGE B-CELL LYMPHOMA
     Dosage: HIGH DOSE (FOR 3 H ON DAY 2 OF CYCLES FOUR AND FIVE)
     Route: 042
  8. DOXORUBICIN [Suspect]
     Active Substance: DOXORUBICIN
     Indication: DIFFUSE LARGE B-CELL LYMPHOMA
     Dosage: 50 MG/M2 (ON DAY 1 OF CYCLE ONE AND DAY 2 OF CYCLES TWO, THREE, AND SIX TO EIGHT)
     Route: 042
  9. RITUXIMAB. [Suspect]
     Active Substance: RITUXIMAB
     Indication: DIFFUSE LARGE B-CELL LYMPHOMA
     Dosage: 375 MG/M2 (ON DAY 8 OF CYCLE ONE AND DAY 1 OF CYCLES TWO TO EIGHT)
     Route: 042
  10. CYTARABINE. [Suspect]
     Active Substance: CYTARABINE
     Indication: DIFFUSE LARGE B-CELL LYMPHOMA
     Dosage: 40 MG (BEFORE THE START OF CYCLES TWO, THREE, SEVEN, AND EIGHT OF R-CHOP)
     Route: 037

REACTIONS (3)
  - Neutropenia [Unknown]
  - Leukopenia [Unknown]
  - Pseudomonal sepsis [Unknown]
